FAERS Safety Report 5293910-7 (Version None)
Quarter: 2007Q2

REPORT INFORMATION
  Report Type: 
  Country: None (occurrence: None)
  Receive Date: 20070405
  Receipt Date: 20061227
  Transmission Date: 20071010
  Serious: Yes (Hospitalization, Other)
  Sender: FDA-Public Use
  Company Number: 163-20785-06050764

PATIENT
  Age: 72 Year
  Sex: Female

DRUGS (12)
  1. THALOMID [Suspect]
     Indication: MULTIPLE MYELOMA
     Dosage: 100 MG, 1 IN 1 D, ORAL
     Route: 048
     Dates: start: 20050201, end: 20060523
  2. PREDNISONE TAB [Concomitant]
  3. ACIPHEX [Concomitant]
  4. DETROL LA [Concomitant]
  5. ZOCOR [Concomitant]
  6. LEVOXYL [Concomitant]
  7. MULTIVITAMIN [Concomitant]
  8. VICODIN [Concomitant]
  9. ZOMETA [Concomitant]
  10. K-DUR 10 [Concomitant]
  11. MACROBID [Concomitant]
  12. CALCIUM (CALCIUM) [Concomitant]

REACTIONS (4)
  - APHASIA [None]
  - ENCEPHALOPATHY [None]
  - MENTAL STATUS CHANGES [None]
  - PSYCHOMOTOR HYPERACTIVITY [None]
